FAERS Safety Report 6165897-6 (Version None)
Quarter: 2009Q2

REPORT INFORMATION
  Report Type: 
  Country: None (occurrence: None)
  Receive Date: 20090423
  Receipt Date: 20090414
  Transmission Date: 20091009
  Serious: Yes (Hospitalization, Other)
  Sender: FDA-Public Use
  Company Number: FR-ABBOTT-09P-056-0568239-00

PATIENT
  Sex: Male
  Weight: 66 kg

DRUGS (8)
  1. HUMIRA [Suspect]
     Indication: SPONDYLITIS
     Route: 058
     Dates: start: 20080522, end: 20081104
  2. METHOTREXATE [Concomitant]
     Indication: SPONDYLITIS
     Route: 048
  3. CORTANCYL [Concomitant]
     Indication: SPONDYLITIS
     Dates: end: 20081101
  4. CARDENSIEL [Concomitant]
     Indication: DRUG USE FOR UNKNOWN INDICATION
     Route: 048
  5. KARDEGIC [Concomitant]
     Indication: DRUG USE FOR UNKNOWN INDICATION
     Route: 048
  6. XANAX [Concomitant]
     Indication: DRUG USE FOR UNKNOWN INDICATION
     Route: 048
  7. EUPANTOL [Concomitant]
     Indication: DRUG USE FOR UNKNOWN INDICATION
     Route: 048
  8. ATHYMIL [Concomitant]
     Indication: DRUG USE FOR UNKNOWN INDICATION
     Route: 048

REACTIONS (23)
  - ABDOMINAL PAIN UPPER [None]
  - ADRENOMEGALY [None]
  - AFFECTIVE DISORDER [None]
  - ANOREXIA [None]
  - ASTHENIA [None]
  - CYTOLYTIC HEPATITIS [None]
  - DEPRESSION [None]
  - DISSEMINATED TUBERCULOSIS [None]
  - GENERAL PHYSICAL HEALTH DETERIORATION [None]
  - HEPATIC NEOPLASM [None]
  - HEPATITIS [None]
  - INSOMNIA [None]
  - INTERSTITIAL LUNG DISEASE [None]
  - LYMPHADENOPATHY [None]
  - NIGHT SWEATS [None]
  - PERICARDIAL EFFUSION [None]
  - PLEURAL EFFUSION [None]
  - PYREXIA [None]
  - RESPIRATORY DISTRESS [None]
  - SPLEEN DISORDER [None]
  - SPLENOMEGALY [None]
  - THROMBOCYTOPENIA [None]
  - WEIGHT DECREASED [None]
